FAERS Safety Report 6144388-2 (Version None)
Quarter: 2009Q2

REPORT INFORMATION
  Report Type: 
  Country: None (occurrence: None)
  Receive Date: 20090406
  Receipt Date: 20090327
  Transmission Date: 20091009
  Serious: Yes (Hospitalization)
  Sender: FDA-Public Use
  Company Number: US-AVENTIS-200912571US

PATIENT
  Age: 66 Year
  Sex: Female

DRUGS (4)
  1. LANTUS [Suspect]
     Dosage: DOSE: 10 UNITS IN THE MORNING AND 15 UNITS AT NIGHT
     Route: 058
     Dates: start: 20090101
  2. CORTICORTISONE [Suspect]
     Indication: BACK PAIN
     Dosage: DOSE: UNK
  3. VITAMINS [Suspect]
     Dosage: DOSE: UNK
  4. ANOTHER INSULIN NOS [Concomitant]
     Dosage: DOSE: UNK

REACTIONS (6)
  - BACK DISORDER [None]
  - CONDITION AGGRAVATED [None]
  - DYSSTASIA [None]
  - MUSCLE SPASMS [None]
  - OPERATIVE HAEMORRHAGE [None]
  - ORAL FUNGAL INFECTION [None]
